FAERS Safety Report 9246965 (Version 2)
Quarter: 2013Q2

REPORT INFORMATION
  Report Type: Spontaneous
  Country: US (occurrence: US)
  Receive Date: 20130422
  Receipt Date: 20130516
  Transmission Date: 20140414
  Serious: Yes (Hospitalization)
  Sender: FDA-Public Use
  Company Number: US-AMGEN-USASP2013027537

PATIENT
  Age: 68 Year
  Sex: Female

DRUGS (10)
  1. ENBREL [Suspect]
     Indication: PSORIASIS
     Dosage: 50 MG, QWK
     Route: 058
     Dates: start: 20121228, end: 20130411
  2. LEVOXYL [Concomitant]
     Dosage: UNK
  3. METFORMIN [Concomitant]
     Dosage: UNK
  4. LIPITOR [Concomitant]
     Dosage: UNK
  5. LANTUS [Concomitant]
     Dosage: UNK
  6. JANUVIA [Concomitant]
     Dosage: UNK
  7. ASA [Concomitant]
     Dosage: UNK
  8. OMEPRAZOLE [Concomitant]
     Dosage: UNK
  9. ALBUTEROL                          /00139501/ [Concomitant]
     Dosage: UNK
  10. ADVAIR [Concomitant]
     Dosage: UNK

REACTIONS (3)
  - Myocardial infarction [Unknown]
  - Pneumonia [Recovering/Resolving]
  - Infection [Recovering/Resolving]
